FAERS Safety Report 12672898 (Version 1)
Quarter: 2016Q3

REPORT INFORMATION
  Report Type: Spontaneous
  Country: GB (occurrence: GB)
  Receive Date: 20160822
  Receipt Date: 20160822
  Transmission Date: 20161109
  Serious: Yes (Other)
  Sender: FDA-Public Use
  Company Number: GB-VIFOR (INTERNATIONAL) INC.-VIT-2016-04323

PATIENT
  Age: 69 Year
  Sex: Male
  Weight: 138 kg

DRUGS (17)
  1. ATENOLOL. [Concomitant]
     Active Substance: ATENOLOL
  2. PRAVASTATIN. [Concomitant]
     Active Substance: PRAVASTATIN
  3. QUINAPRIL. [Concomitant]
     Active Substance: QUINAPRIL
  4. DOMPERIDONE [Concomitant]
     Active Substance: DOMPERIDONE
  5. DOXAZOSIN [Concomitant]
     Active Substance: DOXAZOSIN\DOXAZOSIN MESYLATE
  6. LANTUS [Concomitant]
     Active Substance: INSULIN GLARGINE
  7. MIRCERA [Suspect]
     Active Substance: METHOXY POLYETHYLENE GLYCOL-EPOETIN BETA
     Indication: CHRONIC KIDNEY DISEASE
     Route: 058
     Dates: start: 20160513
  8. BETAHISTINE [Concomitant]
     Active Substance: BETAHISTINE
  9. DIGOXIN. [Concomitant]
     Active Substance: DIGOXIN
  10. WARFARIN [Suspect]
     Active Substance: WARFARIN
     Indication: PRODUCT USED FOR UNKNOWN INDICATION
     Route: 065
     Dates: start: 2016
  11. APIDRA [Concomitant]
     Active Substance: INSULIN GLULISINE
  12. FUROSEMIDE. [Concomitant]
     Active Substance: FUROSEMIDE
  13. OMEPRAZOLE. [Concomitant]
     Active Substance: OMEPRAZOLE
  14. SPIRONOLACTONE. [Concomitant]
     Active Substance: SPIRONOLACTONE
  15. ALFACALCIDOL [Concomitant]
     Active Substance: ALFACALCIDOL
  16. GABAPENTIN. [Concomitant]
     Active Substance: GABAPENTIN
  17. FERROUS SULFATE. [Concomitant]
     Active Substance: FERROUS SULFATE

REACTIONS (3)
  - Potentiating drug interaction [Unknown]
  - Off label use [Unknown]
  - International normalised ratio increased [Unknown]

NARRATIVE: CASE EVENT DATE: 2016
